FAERS Safety Report 8457922-4 (Version None)
Quarter: 2012Q2

REPORT INFORMATION
  Report Type: 
  Country: None (occurrence: None)
  Receive Date: 20120618
  Receipt Date: 20120618
  Transmission Date: 20120825
  Serious: Yes (Other)
  Sender: FDA-Public Use
  Company Number: None

PATIENT
  Sex: Female
  Weight: 58.514 kg

DRUGS (5)
  1. RIBAVIRIN [Suspect]
     Indication: HEPATITIS C
     Dosage: 600MG/400MG AM/PM ORAL
     Route: 048
     Dates: start: 20120402, end: 20120608
  2. RIBAVIRIN [Suspect]
     Indication: COMA HEPATIC
     Dosage: 600MG/400MG AM/PM ORAL
     Route: 048
     Dates: start: 20120402, end: 20120608
  3. INCIVEK [Concomitant]
  4. PEGASYS [Suspect]
     Indication: HEPATITIS C
     Dosage: 180MCG QW SQ
     Route: 058
     Dates: start: 20120402, end: 20120608
  5. PEGASYS [Suspect]
     Indication: COMA HEPATIC
     Dosage: 180MCG QW SQ
     Route: 058
     Dates: start: 20120402, end: 20120608

REACTIONS (7)
  - MUSCLE TWITCHING [None]
  - INSOMNIA [None]
  - BURNING SENSATION [None]
  - ABDOMINAL DISCOMFORT [None]
  - MYALGIA [None]
  - RASH ERYTHEMATOUS [None]
  - CHILLS [None]
